FAERS Safety Report 8301848 (Version 5)
Quarter: 2013Q2

REPORT INFORMATION
  Report Type: Spontaneous
  Country: JP (occurrence: JP)
  Receive Date: 20111220
  Receipt Date: 20130422
  Transmission Date: 20140414
  Serious: Yes (Hospitalization, Other)
  Sender: FDA-Public Use
  Company Number: JP-JNJFOC-20111204943

PATIENT
  Age: 29 Year
  Sex: Male
  Weight: 83 kg

DRUGS (8)
  1. REMICADE [Suspect]
     Indication: CROHN^S DISEASE
     Route: 042
     Dates: start: 20080925
  2. REMICADE [Suspect]
     Indication: CROHN^S DISEASE
     Route: 042
  3. REMICADE [Suspect]
     Indication: CROHN^S DISEASE
     Route: 042
     Dates: start: 20110818
  4. PENTASA [Concomitant]
     Indication: CROHN^S DISEASE
     Route: 048
     Dates: start: 20080308, end: 20110817
  5. BIO-THREE [Concomitant]
     Indication: CROHN^S DISEASE
     Dosage: DAILY DOSE: 3 TABLETS
     Route: 048
     Dates: start: 20080308, end: 20110817
  6. MUCOSOLVAN [Concomitant]
     Route: 048
     Dates: start: 20110913
  7. CLOPERASTINE FENDIZOATE [Concomitant]
     Route: 048
     Dates: start: 20110913
  8. CALONAL [Concomitant]
     Route: 065
     Dates: start: 20110913

REACTIONS (2)
  - Immune reconstitution inflammatory syndrome [Recovering/Resolving]
  - Disseminated tuberculosis [Recovering/Resolving]
